FAERS Safety Report 9507321 (Version 2)
Quarter: 2013Q3

REPORT INFORMATION
  Report Type: Spontaneous
  Country: IT (occurrence: IT)
  Receive Date: 20130909
  Receipt Date: 20130910
  Transmission Date: 20140515
  Serious: Yes (Hospitalization)
  Sender: FDA-Public Use
  Company Number: IT-PFIZER INC-2013256880

PATIENT
  Age: 38 Year
  Sex: Male

DRUGS (5)
  1. HALCION [Suspect]
     Dosage: 250 UG 20 TABLETS
     Route: 048
     Dates: start: 20130814, end: 20130814
  2. SURMONTIL [Suspect]
     Dosage: 250 MG 8 TABLETS
     Route: 048
     Dates: start: 20130814, end: 20130814
  3. PROZINE [Suspect]
     Dosage: 100 MG 12 TABLETS
     Route: 048
     Dates: start: 20130814, end: 20130814
  4. DEPAKIN CHRONO [Concomitant]
     Route: 048
  5. RIVOTRIL [Concomitant]
     Dosage: 60 GTT, UNK
     Route: 048

REACTIONS (5)
  - Intentional overdose [Unknown]
  - Sopor [Unknown]
  - Feeling jittery [Unknown]
  - Toxicity to various agents [Unknown]
  - Suicide attempt [Unknown]
